FAERS Safety Report 4276131-6 (Version None)
Quarter: 2004Q1

REPORT INFORMATION
  Report Type: 
  Country: None (occurrence: None)
  Receive Date: 20040121
  Receipt Date: 20031023
  Transmission Date: 20041129
  Serious: No
  Sender: FDA-Public Use
  Company Number: US-GLAXOSMITHKLINE-A0431400A

PATIENT
  Age: 60 Year
  Sex: Female
  Weight: 72.7 kg

DRUGS (2)
  1. VALTREX [Suspect]
     Indication: HERPES ZOSTER
     Route: 065
  2. CHEMOTHERAPY [Concomitant]

REACTIONS (1)
  - HOT FLUSH [None]
